FAERS Safety Report 6856211-9 (Version None)
Quarter: 2010Q2

REPORT INFORMATION
  Report Type: 
  Country: None (occurrence: None)
  Receive Date: 20100629
  Receipt Date: 20100513
  Transmission Date: 20101027
  Serious: No
  Sender: FDA-Public Use
  Company Number: US-WYE-H15290110

PATIENT
  Age: 59 Year
  Sex: Female
  Weight: 86.71 kg

DRUGS (5)
  1. PRISTIQ [Suspect]
     Indication: DEPRESSION
     Dosage: 500 MG 1X PER 1 DAY, ORAL
     Route: 048
     Dates: start: 20100511
  2. CYMBALTA [Suspect]
     Indication: DEPRESSION
     Dates: start: 20070101
  3. NEURONTIN [Concomitant]
  4. NEXIUM [Concomitant]
  5. HYDROXYZINE [Concomitant]

REACTIONS (3)
  - COLD SWEAT [None]
  - DRUG INTERACTION [None]
  - NIGHT SWEATS [None]
